FAERS Safety Report 9034898 (Version 1)
Quarter: 2013Q1

REPORT INFORMATION
  Report Type: Spontaneous
  Country: GB (occurrence: None)
  Receive Date: 20130116
  Receipt Date: 20130116
  Transmission Date: 20140127
  Serious: Yes (Hospitalization, Other)
  Sender: FDA-Public Use
  Company Number: AUR-APL-2013-00296

PATIENT
  Sex: Male

DRUGS (5)
  1. RANITIDINE (RANITIDINE) [Suspect]
     Indication: GASTROOESOPHAGEAL REFLUX DISEASE
  2. DOMPERIDONE (DOMPERIDONE) [Concomitant]
  3. ESOMEPRAZOLE (ESOMEPRAZOLE) [Concomitant]
  4. GAVISCON (GAVISCON /00237601/) [Concomitant]
  5. METOCLOPRAMIDE (METOCLOPRAMIDE) [Concomitant]

REACTIONS (2)
  - No therapeutic response [None]
  - Pneumonia aspiration [None]
